FAERS Safety Report 9543306 (Version 1)
Quarter: 2013Q3

REPORT INFORMATION
  Report Type: Spontaneous
  Country: AU (occurrence: AU)
  Receive Date: 20130923
  Receipt Date: 20130923
  Transmission Date: 20140515
  Serious: Yes (Other)
  Sender: FDA-Public Use
  Company Number: PHHY2013AU105554

PATIENT
  Sex: Female

DRUGS (7)
  1. GALVUS [Suspect]
  2. EXFORGE [Suspect]
     Dosage: 1 DF, (160/ 10 MG)
  3. METFORMIN HYDROCHLORIDE SANDOZ [Suspect]
  4. ATENOLOL [Suspect]
  5. JANUMET [Suspect]
  6. LIPITOR [Suspect]
  7. NORVASC [Suspect]

REACTIONS (2)
  - Blood creatinine increased [Unknown]
  - Renal failure acute [Unknown]
